FAERS Safety Report 8372091-7 (Version None)
Quarter: 2012Q2

REPORT INFORMATION
  Report Type: 
  Country: None (occurrence: None)
  Receive Date: 20120520
  Receipt Date: 20120410
  Transmission Date: 20120825
  Serious: Yes (Congenital Anomaly, Other)
  Sender: FDA-Public Use
  Company Number: AU-BRISTOL-MYERS SQUIBB COMPANY-16353914

PATIENT

DRUGS (1)
  1. BARACLUDE [Suspect]
     Route: 064
     Dates: start: 20080131

REACTIONS (2)
  - ATRIOVENTRICULAR SEPTAL DEFECT [None]
  - PULMONARY ARTERY ATRESIA [None]
